FAERS Safety Report 9729414 (Version 1)
Quarter: 2013Q4

REPORT INFORMATION
  Report Type: Spontaneous
  Country: US (occurrence: US)
  Receive Date: 20131204
  Receipt Date: 20131204
  Transmission Date: 20140711
  Serious: No
  Sender: FDA-Public Use
  Company Number: US-GILEAD-2009-0021190

PATIENT
  Sex: Female
  Weight: 66.68 kg

DRUGS (5)
  1. LETAIRIS [Suspect]
     Indication: PULMONARY ARTERIAL HYPERTENSION
     Route: 048
     Dates: start: 20081108
  2. REVATIO [Concomitant]
  3. METFORMIN [Concomitant]
  4. GLUCOTROL [Concomitant]
  5. IBUPROFEN [Concomitant]

REACTIONS (4)
  - Eye swelling [Unknown]
  - Dyspnoea [Unknown]
  - Swelling face [Unknown]
  - Erythema [Unknown]
